FAERS Safety Report 11167428 (Version 1)
Quarter: 2015Q2

REPORT INFORMATION
  Report Type: Spontaneous
  Country: US (occurrence: None)
  Receive Date: 20150515
  Receipt Date: 20150515
  Transmission Date: 20150821
  Serious: Yes (Other)
  Sender: FDA-Public Use
  Company Number: 2015007193

PATIENT
  Sex: Female

DRUGS (3)
  1. MUCINEX D (GUAIFENESIN PSEUDOEPHEDRINE HYDROCHLORIDE) [Concomitant]
  2. FLUTICASONE [Concomitant]
     Active Substance: FLUTICASONE\FLUTICASONE PROPIONATE
  3. CIMZIA [Suspect]
     Active Substance: CERTOLIZUMAB PEGOL
     Indication: PRODUCT USED FOR UNKNOWN INDICATION
     Route: 058

REACTIONS (2)
  - Sinusitis [None]
  - Tooth infection [None]

NARRATIVE: CASE EVENT DATE: 2013
